FAERS Safety Report 4520231-X (Version None)
Quarter: 2004Q4

REPORT INFORMATION
  Report Type: 
  Country: None (occurrence: None)
  Receive Date: 20041201
  Receipt Date: 20041201
  Transmission Date: 20050328
  Serious: Yes (Hospitalization)
  Sender: FDA-Public Use
  Company Number: None

PATIENT
  Sex: Female
  Weight: 75 kg

DRUGS (6)
  1. DARBEPOETIN ALFA [Suspect]
     Indication: ANAEMIA
     Dosage: 4.5 MCG/KG - 9.0 MCG/KG 1X WKLY
     Dates: start: 20040310, end: 20040929
  2. DARBEPOETIN ALFA [Suspect]
     Indication: MYELODYSPLASTIC SYNDROME
     Dosage: 4.5 MCG/KG - 9.0 MCG/KG 1X WKLY
     Dates: start: 20040310, end: 20040929
  3. GROWTH COLONY STIMULATING FACTOR (G-CSF) [Suspect]
     Indication: ANAEMIA
     Dosage: 2.5 MCG/KG  (205 MCG SC 2X WKLY)
     Route: 058
     Dates: start: 20040609, end: 20041002
  4. GROWTH COLONY STIMULATING FACTOR (G-CSF) [Suspect]
     Indication: MYELODYSPLASTIC SYNDROME
     Dosage: 2.5 MCG/KG  (205 MCG SC 2X WKLY)
     Route: 058
     Dates: start: 20040609, end: 20041002
  5. SYNTHROID [Concomitant]
  6. MULTI-VITAMIN [Concomitant]

REACTIONS (4)
  - DRUG TOXICITY [None]
  - HAEMOPTYSIS [None]
  - RHINORRHOEA [None]
  - THROMBOCYTOPENIA [None]
